FAERS Safety Report 7651860-2 (Version None)
Quarter: 2011Q3

REPORT INFORMATION
  Report Type: 
  Country: None (occurrence: None)
  Receive Date: 20110803
  Receipt Date: 20110726
  Transmission Date: 20111222
  Serious: Yes (Other)
  Sender: FDA-Public Use
  Company Number: US-BIOGENIDEC-2011BI021350

PATIENT
  Age: 55 Year
  Sex: Female

DRUGS (2)
  1. AVONEX [Suspect]
     Indication: MULTIPLE SCLEROSIS
     Route: 030
     Dates: start: 19991025
  2. AVONEX [Suspect]
     Route: 030

REACTIONS (4)
  - GRAND MAL CONVULSION [None]
  - HYPOPHAGIA [None]
  - BLOOD GLUCOSE INCREASED [None]
  - RESPIRATORY ARREST [None]
